FAERS Safety Report 22271771 (Version 3)
Quarter: 2023Q2

REPORT INFORMATION
  Report Type: Report from Study
  Country: CA (occurrence: CA)
  Receive Date: 20230502
  Receipt Date: 20230601
  Transmission Date: 20230722
  Serious: Yes (Hospitalization, Other)
  Sender: FDA-Public Use
  Company Number: CA-002147023-NVSC2023CA008492

PATIENT
  Age: 56 Year
  Sex: Female

DRUGS (6)
  1. HYRIMOZ [Suspect]
     Active Substance: ADALIMUMAB-ADAZ
     Indication: Crohn^s disease
     Dosage: 40 MG, QW
     Route: 058
     Dates: start: 20220519
  2. HYRIMOZ [Suspect]
     Active Substance: ADALIMUMAB-ADAZ
     Dosage: 40 MG, (EVERY 5 DAYS WITH LAB WORKS)
     Route: 058
  3. HYRIMOZ [Suspect]
     Active Substance: ADALIMUMAB-ADAZ
     Dosage: 40 MG (1 INJECTION EVERY 5 DAYS)
     Route: 058
     Dates: start: 20230316
  4. PREDNISONE [Concomitant]
     Active Substance: PREDNISONE
     Indication: Crohn^s disease
     Dosage: 6 DOSAGE FORM, QD (ON TAPERING DOSE) (STARTED ON 6 PILLS/DAILY AND HAS TO DECREASE HER DOSE EVERY 2N
     Route: 048
  5. PREDNISONE [Concomitant]
     Active Substance: PREDNISONE
     Dosage: 4 DOSAGE FORM (PILLS), QD
     Route: 048
  6. PREDNISONE [Concomitant]
     Active Substance: PREDNISONE
     Dosage: 17.5 MG, QD
     Route: 048

REACTIONS (5)
  - Pericarditis [Unknown]
  - Dyspnoea [Unknown]
  - Anaemia [Unknown]
  - Off label use [Unknown]
  - Therapeutic response decreased [Unknown]
